FAERS Safety Report 5004138-X (Version None)
Quarter: 2006Q2

REPORT INFORMATION
  Report Type: 
  Country: None (occurrence: None)
  Receive Date: 20060517
  Receipt Date: 20060511
  Transmission Date: 20061013
  Serious: Yes (Other)
  Sender: FDA-Public Use
  Company Number: 2006AC00912

PATIENT
  Age: 30 Year
  Sex: Male

DRUGS (2)
  1. PROPOFOL [Suspect]
     Indication: SEDATION
     Route: 042
  2. REMIFENTANYL [Concomitant]
     Indication: SEDATION

REACTIONS (5)
  - BLOOD CREATINE PHOSPHOKINASE INCREASED [None]
  - BLOOD LACTIC ACID INCREASED [None]
  - PROPOFOL INFUSION SYNDROME [None]
  - SINUS ARRHYTHMIA [None]
  - TROPONIN T INCREASED [None]
